FAERS Safety Report 17572005 (Version 2)
Quarter: 2020Q2

REPORT INFORMATION
  Report Type: Report from Study
  Country: PA (occurrence: PA)
  Receive Date: 20200323
  Receipt Date: 20200618
  Transmission Date: 20200713
  Serious: Yes (Hospitalization)
  Sender: FDA-Public Use
  Company Number: PA-INCYTE CORPORATION-2019IN009197

PATIENT

DRUGS (3)
  1. JAKAVI [Suspect]
     Active Substance: RUXOLITINIB
     Indication: PRODUCT USED FOR UNKNOWN INDICATION
     Dosage: 5 MG, BID (5 MG IN THE MORNING AND 5 MG IN THE AFTERNOON)
     Route: 065
     Dates: start: 20190806
  2. JAKAVI [Suspect]
     Active Substance: RUXOLITINIB
     Dosage: 5 MG, BID (5MG IN THE MORNING AND 5 MG IN THE AFTERNOON)
     Route: 065
     Dates: start: 20190906
  3. JAKAVI [Suspect]
     Active Substance: RUXOLITINIB
     Dosage: 15 MG, BID (ONE IN THE MORNING AND ANOTHER ONE IN THE EVENING)
     Route: 065

REACTIONS (10)
  - Fear [Unknown]
  - Ocular vascular disorder [Unknown]
  - Blood pressure abnormal [Unknown]
  - Dizziness [Unknown]
  - Abdominal pain upper [Unknown]
  - Pain [Unknown]
  - Chest pain [Unknown]
  - Malaise [Unknown]
  - Aphonia [Unknown]
  - Headache [Unknown]
